FAERS Safety Report 22141444 (Version 1)
Quarter: 2023Q1

REPORT INFORMATION
  Report Type: Spontaneous
  Country: US (occurrence: US)
  Receive Date: 20230327
  Receipt Date: 20230327
  Transmission Date: 20230418
  Serious: Yes (Other)
  Sender: FDA-Public Use
  Company Number: US-ELI_LILLY_AND_COMPANY-US202303008134

PATIENT
  Age: 66 Year
  Sex: Female

DRUGS (1)
  1. TRULICITY [Suspect]
     Active Substance: DULAGLUTIDE
     Indication: Product used for unknown indication
     Dosage: 0.75 MG, UNKNOWN
     Route: 065
     Dates: start: 20230310

REACTIONS (8)
  - Weight decreased [Unknown]
  - Tongue discolouration [Unknown]
  - Dehydration [Unknown]
  - Feeding disorder [Unknown]
  - Diarrhoea [Recovered/Resolved]
  - Vomiting [Recovered/Resolved]
  - Nausea [Unknown]
  - Lethargy [Unknown]
